FAERS Safety Report 8318710-2 (Version None)
Quarter: 2012Q2

REPORT INFORMATION
  Report Type: 
  Country: None (occurrence: None)
  Receive Date: 20120427
  Receipt Date: 20120423
  Transmission Date: 20120825
  Serious: Yes (Hospitalization)
  Sender: FDA-Public Use
  Company Number: US-BAYER-2012-023969

PATIENT
  Age: 23 Year
  Sex: Female

DRUGS (4)
  1. MOTRIN [Concomitant]
     Indication: PAIN
     Dosage: UNK UNK, PRN
     Route: 048
  2. YASMIN [Suspect]
  3. YAZ [Suspect]
     Dosage: UNK
     Dates: start: 20100401, end: 20100901
  4. HYDROCODONE BITARTRATE + ACETAMINOPHEN [Concomitant]
     Indication: PAIN
     Dosage: UNK UNK, PRN
     Route: 048

REACTIONS (9)
  - GENERAL PHYSICAL HEALTH DETERIORATION [None]
  - ANXIETY [None]
  - INJURY [None]
  - BACK PAIN [None]
  - PELVIC VENOUS THROMBOSIS [None]
  - PULMONARY EMBOLISM [None]
  - DYSPNOEA [None]
  - PAIN [None]
  - EMOTIONAL DISTRESS [None]
